FAERS Safety Report 8582441-4 (Version None)
Quarter: 2012Q3

REPORT INFORMATION
  Report Type: 
  Country: None (occurrence: None)
  Receive Date: 20120809
  Receipt Date: 20120802
  Transmission Date: 20120928
  Serious: Yes (Hospitalization)
  Sender: FDA-Public Use
  Company Number: KR-ROCHE-1094741

PATIENT
  Age: 40 Year
  Sex: Female

DRUGS (1)
  1. BONIVA [Suspect]
     Indication: OSTEOPOROSIS
     Dates: start: 20120726

REACTIONS (5)
  - HYPOAESTHESIA [None]
  - ABDOMINAL PAIN UPPER [None]
  - BACK PAIN [None]
  - RESPIRATORY DISORDER [None]
  - HEADACHE [None]
